FAERS Safety Report 20154653 (Version 3)
Quarter: 2022Q2

REPORT INFORMATION
  Report Type: Other
  Country: DE (occurrence: DE)
  Receive Date: 20211207
  Receipt Date: 20220411
  Transmission Date: 20220721
  Serious: Yes (Other)
  Sender: FDA-Public Use
  Company Number: DE-002147023-NVSC2021DE259898

PATIENT
  Sex: Female

DRUGS (1)
  1. RANIBIZUMAB [Suspect]
     Active Substance: RANIBIZUMAB
     Indication: Neovascular age-related macular degeneration
     Route: 050
     Dates: start: 20210916

REACTIONS (2)
  - Vitreous haemorrhage [Recovered/Resolved]
  - Posterior capsule opacification [Recovered/Resolved]

NARRATIVE: CASE EVENT DATE: 20210916
